FAERS Safety Report 16590831 (Version 1)
Quarter: 2019Q3

REPORT INFORMATION
  Report Type: Spontaneous
  Country: RO (occurrence: RO)
  Receive Date: 20190718
  Receipt Date: 20190718
  Transmission Date: 20191004
  Serious: Yes (Death)
  Sender: FDA-Public Use
  Company Number: RO-PFIZER INC-2019308570

PATIENT
  Age: 58 Year
  Sex: Male
  Weight: 77 kg

DRUGS (1)
  1. SUTENT [Suspect]
     Active Substance: SUNITINIB MALATE
     Indication: RENAL CANCER
     Dosage: 50 MG, CYCLIC, 28 DAYS ON TREATMENT AND 14 DAYS OF PAUSE
     Route: 048
     Dates: end: 20190416

REACTIONS (1)
  - Death [Fatal]

NARRATIVE: CASE EVENT DATE: 20190716
